FAERS Safety Report 8801916 (Version 2)
Quarter: 2012Q4

REPORT INFORMATION
  Report Type: Report from Study
  Country: IT (occurrence: IT)
  Receive Date: 20120921
  Receipt Date: 20121002
  Transmission Date: 20130627
  Serious: No
  Sender: FDA-Public Use
  Company Number: IT-NOVOPROD-355573

PATIENT
  Age: 50 Year
  Sex: Female
  Weight: 126.2 kg

DRUGS (2)
  1. LIRAGLUTIDE FLEXPEN [Suspect]
     Indication: OBESITY
     Dosage: 0.6 mg, qd
     Dates: start: 20110929
  2. LIRAGLUTIDE FLEXPEN [Suspect]
     Dosage: 3.0 mg, qd
     Dates: start: 20111101

REACTIONS (1)
  - Hyperlipasaemia [Recovered/Resolved]
